FAERS Safety Report 7587390-6 (Version None)
Quarter: 2011Q3

REPORT INFORMATION
  Report Type: 
  Country: None (occurrence: None)
  Receive Date: 20110702
  Receipt Date: 20110622
  Transmission Date: 20111222
  Serious: Yes (Hospitalization, Other)
  Sender: FDA-Public Use
  Company Number: JP-B.I. PHARMACEUTICALS,INC./RIDGEFIELD-2011-DE-03741GD

PATIENT
  Sex: Male

DRUGS (4)
  1. PRAMIPEXOLE DIHYDROCHLORIDE [Suspect]
     Indication: PARKINSON'S DISEASE
     Route: 048
  2. DONEPEZIL HCL [Suspect]
     Indication: PARKINSON'S DISEASE
     Route: 048
  3. TRIHEXYPHENIDYL HYDROCHLORIDE [Suspect]
     Indication: PARKINSON'S DISEASE
     Route: 048
  4. SELEGILINE [Suspect]
     Indication: PARKINSON'S DISEASE
     Route: 048

REACTIONS (6)
  - PERSECUTORY DELUSION [None]
  - MENTAL STATUS CHANGES [None]
  - COGNITIVE DISORDER [None]
  - HALLUCINATION, VISUAL [None]
  - AGITATION [None]
  - SUICIDAL IDEATION [None]
